FAERS Safety Report 21804878 (Version 1)
Quarter: 2023Q1

REPORT INFORMATION
  Report Type: Spontaneous
  Country: IR (occurrence: IR)
  Receive Date: 20230102
  Receipt Date: 20230102
  Transmission Date: 20230417
  Serious: Yes (Death)
  Sender: FDA-Public Use
  Company Number: IR-STERISCIENCE B.V.-2022-ST-000487

PATIENT
  Age: 6 Year
  Sex: Female

DRUGS (16)
  1. PIPERACILLIN SODIUM\TAZOBACTAM SODIUM [Suspect]
     Active Substance: PIPERACILLIN SODIUM\TAZOBACTAM SODIUM
     Indication: Neutropenic colitis
     Dosage: 100 MILLIGRAM/KILOGRAM, Q6H
     Route: 065
  2. PIPERACILLIN SODIUM\TAZOBACTAM SODIUM [Suspect]
     Active Substance: PIPERACILLIN SODIUM\TAZOBACTAM SODIUM
     Indication: Mucormycosis
  3. PIPERACILLIN SODIUM\TAZOBACTAM SODIUM [Suspect]
     Active Substance: PIPERACILLIN SODIUM\TAZOBACTAM SODIUM
     Indication: Aspergillus infection
  4. VANCOMYCIN [Suspect]
     Active Substance: VANCOMYCIN
     Indication: Neutropenic colitis
     Dosage: 15 MILLIGRAM/KILOGRAM, Q6H
     Route: 065
  5. VANCOMYCIN [Suspect]
     Active Substance: VANCOMYCIN
     Indication: Mucormycosis
  6. VANCOMYCIN [Suspect]
     Active Substance: VANCOMYCIN
     Indication: Aspergillus infection
  7. AMPHOTERICIN B [Suspect]
     Active Substance: AMPHOTERICIN B
     Indication: Mucormycosis
     Dosage: 5 MILLIGRAM/KILOGRAM, QD
     Route: 065
     Dates: start: 202110
  8. AMPHOTERICIN B [Suspect]
     Active Substance: AMPHOTERICIN B
     Indication: Aspergillus infection
  9. LINEZOLID [Suspect]
     Active Substance: LINEZOLID
     Indication: Neutropenic colitis
     Dosage: UNK
     Route: 065
     Dates: start: 202110
  10. LINEZOLID [Suspect]
     Active Substance: LINEZOLID
     Indication: Mucormycosis
  11. LINEZOLID [Suspect]
     Active Substance: LINEZOLID
     Indication: Aspergillus infection
  12. COLISTIN [Suspect]
     Active Substance: COLISTIN
     Indication: Neutropenic colitis
     Dosage: UNK
     Route: 065
     Dates: start: 202110
  13. COLISTIN [Suspect]
     Active Substance: COLISTIN
     Indication: Mucormycosis
  14. COLISTIN [Suspect]
     Active Substance: COLISTIN
     Indication: Aspergillus infection
  15. VORICONAZOLE [Suspect]
     Active Substance: VORICONAZOLE
     Indication: Mucormycosis
     Dosage: UNK
     Route: 065
     Dates: start: 202110
  16. VORICONAZOLE [Suspect]
     Active Substance: VORICONAZOLE
     Indication: Aspergillus infection

REACTIONS (1)
  - Drug ineffective [Fatal]

NARRATIVE: CASE EVENT DATE: 20210101
